FAERS Safety Report 5776244-3 (Version None)
Quarter: 2008Q2

REPORT INFORMATION
  Report Type: 
  Country: None (occurrence: None)
  Receive Date: 20080616
  Receipt Date: 20080609
  Transmission Date: 20081010
  Serious: Yes (Hospitalization)
  Sender: FDA-Public Use
  Company Number: MEDI-0006535

PATIENT
  Age: 4 Month
  Sex: Male

DRUGS (5)
  1. SYNAGIS [Suspect]
     Dosage: 45 MG, INTRAMUSCULAR; 70 MG, INTRAMUSCULAR; 80 MG, INTRAMUSCULAR
     Route: 030
     Dates: start: 20071205, end: 20071205
  2. SYNAGIS [Suspect]
     Dosage: 45 MG, INTRAMUSCULAR; 70 MG, INTRAMUSCULAR; 80 MG, INTRAMUSCULAR
     Route: 030
     Dates: start: 20080104
  3. SYNAGIS [Suspect]
     Dosage: 45 MG, INTRAMUSCULAR; 70 MG, INTRAMUSCULAR; 80 MG, INTRAMUSCULAR
     Route: 030
     Dates: start: 20080208
  4. SYNAGIS [Suspect]
  5. SYNAGIS [Suspect]

REACTIONS (5)
  - DEHYDRATION [None]
  - DIARRHOEA [None]
  - IRRITABILITY [None]
  - LETHARGY [None]
  - VOMITING [None]
